FAERS Safety Report 18598408 (Version 1)
Quarter: 2020Q4

REPORT INFORMATION
  Report Type: Report from Study
  Country: None (occurrence: GR)
  Receive Date: 20201209
  Receipt Date: 20201209
  Transmission Date: 20210114
  Serious: Yes (Hospitalization)
  Sender: FDA-Public Use
  Company Number: GR-ABBVIE-20K-066-3561181-00

PATIENT
  Age: 82 Year
  Sex: Female

DRUGS (4)
  1. DUODOPA [Suspect]
     Active Substance: CARBIDOPA\LEVODOPA
     Route: 050
  2. DUODOPA [Suspect]
     Active Substance: CARBIDOPA\LEVODOPA
     Dosage: MD: 12.0 ML; CONTINUOUS RATE: 4.7 ML/H; ED:2.0 ML
     Route: 050
     Dates: start: 20201203
  3. DUODOPA [Suspect]
     Active Substance: CARBIDOPA\LEVODOPA
     Indication: PARKINSON^S DISEASE
     Dosage: MORNING DOSE: 12,0 ML; CONTINUOUS RATE: UNKNOWN; EXTRA DOSE: 2,0 ML
     Route: 050
     Dates: start: 20191029, end: 20200909
  4. DUODOPA [Suspect]
     Active Substance: CARBIDOPA\LEVODOPA
     Dosage: MD: 12.0 ML; CR: 4.4 ML/H (DAY), CR: 2.5 ML/H(NIGHT); ED: 2.0 ML 24 HOUR ADMINISTRATION
     Route: 050
     Dates: start: 20200909, end: 20201203

REACTIONS (4)
  - Mobility decreased [Not Recovered/Not Resolved]
  - Gait inability [Unknown]
  - Stoma site hypergranulation [Recovered/Resolved]
  - Inappropriate schedule of product administration [Unknown]
